FAERS Safety Report 4932759-9 (Version None)
Quarter: 2006Q1

REPORT INFORMATION
  Report Type: 
  Country: None (occurrence: None)
  Receive Date: 20060306
  Receipt Date: 20060303
  Transmission Date: 20060701
  Serious: Yes (Hospitalization)
  Sender: FDA-Public Use
  Company Number: US-RB-2887-2006

PATIENT
  Sex: Female
  Weight: 54.48 kg

DRUGS (4)
  1. SUBOXONE [Suspect]
     Route: 060
     Dates: start: 20060222, end: 20060222
  2. SUBOXONE [Suspect]
     Route: 060
     Dates: start: 20060303, end: 20060303
  3. LORAZEPAM [Concomitant]
     Indication: DRUG WITHDRAWAL SYNDROME
     Route: 065
     Dates: start: 20060303
  4. KETOROLAC TROMETHAMINE [Concomitant]
     Indication: DRUG WITHDRAWAL SYNDROME
     Route: 042
     Dates: start: 20060303

REACTIONS (3)
  - MUSCLE SPASMS [None]
  - TACHYCARDIA [None]
  - TREMOR [None]
